FAERS Safety Report 5015056-5 (Version None)
Quarter: 2006Q2

REPORT INFORMATION
  Report Type: 
  Country: None (occurrence: None)
  Receive Date: 20060426
  Receipt Date: 20060204
  Transmission Date: 20061013
  Serious: No
  Sender: FDA-Public Use
  Company Number: 218769

PATIENT
  Age: 44 Year
  Sex: Female

DRUGS (11)
  1. XOLAIR [Suspect]
     Indication: ASTHMA
     Dosage: 375 MG, Q2W,SUBCUTANEOUS
     Route: 058
     Dates: start: 20050516, end: 20051004
  2. POTASSIUM (POTASSIUM NOS) [Concomitant]
  3. FORADIL [Concomitant]
  4. ALLEGRA [Concomitant]
  5. SINGULAIR [Concomitant]
  6. VERAPAMIL ER (VERAPAMIL HYDROCHLORIDE) [Concomitant]
  7. GLIPIZIDE [Concomitant]
  8. CORZIDE 40/5 (BENDROFLUMETHIAZIDE NADOLOL) [Concomitant]
  9. PREDNISOLONE [Concomitant]
  10. PULMICORT [Concomitant]
  11. ALBUTEROL (ALBUTEROL/ALBUTEROL SULFATE) [Concomitant]

REACTIONS (1)
  - ALOPECIA [None]
